FAERS Safety Report 13066482 (Version 4)
Quarter: 2019Q4

REPORT INFORMATION
  Report Type: Spontaneous
  Country: TR (occurrence: TR)
  Receive Date: 20161227
  Receipt Date: 20191115
  Transmission Date: 20200122
  Serious: Yes (Congenital Anomaly, Other)
  Sender: FDA-Public Use
  Company Number: TR-ABBVIE-16P-161-1822519-00

PATIENT
  Age: 3 Year
  Sex: Male
  Weight: 12 kg

DRUGS (1)
  1. VALPROIC ACID. [Suspect]
     Active Substance: VALPROIC ACID
     Indication: MATERNAL EXPOSURE TIMING UNSPECIFIED
     Route: 064

REACTIONS (8)
  - Foetal anticonvulsant syndrome [Unknown]
  - Dysmorphism [Unknown]
  - Pectus excavatum [Unknown]
  - Congenital nose malformation [Unknown]
  - Gross motor delay [Unknown]
  - Atrial septal defect [Unknown]
  - Foetal exposure during pregnancy [Unknown]
  - Growth retardation [Unknown]
